APPROVED DRUG PRODUCT: ARIPIPRAZOLE
Active Ingredient: ARIPIPRAZOLE
Strength: 20MG
Dosage Form/Route: TABLET;ORAL
Application: A205363 | Product #005 | TE Code: AB
Applicant: PRINSTON PHARMACEUTICAL INC
Approved: Dec 4, 2017 | RLD: No | RS: No | Type: RX